FAERS Safety Report 15954292 (Version 1)
Quarter: 2019Q1

REPORT INFORMATION
  Report Type: Spontaneous
  Country: DE (occurrence: DE)
  Receive Date: 20190212
  Receipt Date: 20190212
  Transmission Date: 20190417
  Serious: Yes (Congenital Anomaly)
  Sender: FDA-Public Use
  Company Number: DE-MYLANLABS-2019M1011857

PATIENT
  Age: 1 Day
  Sex: Male
  Weight: 3.24 kg

DRUGS (6)
  1. METOPROLOL. [Suspect]
     Active Substance: METOPROLOL
     Indication: MIGRAINE PROPHYLAXIS
     Dosage: UNK UNK, QD (71.25 [MG/D ]/ 47.5-0-23.75 MG/D)
     Route: 064
     Dates: start: 20170428, end: 20180215
  2. AMITRIPTYLINE [Suspect]
     Active Substance: AMITRIPTYLINE
     Indication: MIGRAINE PROPHYLAXIS
     Dosage: 37.5 MILLIGRAM, QD (37.5 [MG/D ])
     Route: 064
     Dates: start: 20170518, end: 20180215
  3. CLEXANE [Concomitant]
     Active Substance: ENOXAPARIN SODIUM
     Indication: THROMBOSIS PROPHYLAXIS
     Dosage: UNK UNK, QD (120 [MG/D (-40) ]/ INITIAL 40MG/D, DOSAGE INCREASE TO 2 X 60 MG/D)
     Route: 064
  4. PARACETAMOL [Concomitant]
     Active Substance: ACETAMINOPHEN
     Indication: MIGRAINE
     Dosage: UNK UNK, QD (2000 [MG/D ]/ 1-2 G/D IF REQUIRED)
     Route: 064
     Dates: start: 20170428, end: 20180215
  5. CIPRALEX [Suspect]
     Active Substance: ESCITALOPRAM OXALATE
     Indication: DEPRESSION
     Dosage: 5 [MG/D ]
     Route: 064
     Dates: start: 20170518, end: 20180215
  6. IBUPROFEN. [Concomitant]
     Active Substance: IBUPROFEN
     Indication: MIGRAINE
     Dosage: 600 MILLIGRAM, QD (600 [MG/D ]/ IF REQUIRED)
     Route: 064

REACTIONS (3)
  - Atrial septal defect [Not Recovered/Not Resolved]
  - Fallot^s tetralogy [Not Recovered/Not Resolved]
  - Foetal exposure during pregnancy [Recovered/Resolved]

NARRATIVE: CASE EVENT DATE: 20180215
